FAERS Safety Report 4336016-3 (Version None)
Quarter: 2004Q2

REPORT INFORMATION
  Report Type: 
  Country: None (occurrence: None)
  Receive Date: 20040406
  Receipt Date: 20040329
  Transmission Date: 20050107
  Serious: Yes (Hospitalization)
  Sender: FDA-Public Use
  Company Number: A20040209

PATIENT
  Age: 39 Year
  Sex: Female

DRUGS (3)
  1. CRAVIT OPHTHALMIC SOLUTION (0.5% LEVOFLOXACIN OPHTHALMIC SOLUTION) [Suspect]
     Route: 031
  2. BENOXIL 0.4% SOLUTION (0.4% OXYBUPROCAINE HYDROCHLORIDE OPHTHALMIC SOL [Suspect]
     Dosage: INTRAOCULAR INSTILLATION
     Route: 031
  3. FLOURES TEST PAPER (FLUORESCEIN SODIUM TEST PAPER) [Suspect]
     Dosage: INTRAOCULAR INSTILLATION
     Route: 031

REACTIONS (2)
  - CONJUNCTIVAL OEDEMA [None]
  - LARYNGEAL OEDEMA [None]
